FAERS Safety Report 4327607-4 (Version None)
Quarter: 2004Q1

REPORT INFORMATION
  Report Type: 
  Country: None (occurrence: None)
  Receive Date: 20040330
  Receipt Date: 20040330
  Transmission Date: 20041129
  Serious: Yes (Other)
  Sender: FDA-Public Use
  Company Number: None

PATIENT
  Sex: Female

DRUGS (5)
  1. FLECAINIDE 50 MG BARR [Suspect]
     Dosage: 50 MG TWICE DAILY ORAL
     Route: 048
     Dates: start: 20040316, end: 20040321
  2. LIPITOR [Concomitant]
  3. DILTIA XT [Concomitant]
  4. WARFARIN SODIUM [Concomitant]
  5. ALBUTEROL [Concomitant]

REACTIONS (3)
  - PALPITATIONS [None]
  - PHARMACEUTICAL PRODUCT COMPLAINT [None]
  - VISUAL DISTURBANCE [None]
